FAERS Safety Report 25920444 (Version 2)
Quarter: 2025Q4

REPORT INFORMATION
  Report Type: Spontaneous
  Country: EU (occurrence: EU)
  Receive Date: 20251014
  Receipt Date: 20251117
  Transmission Date: 20260117
  Serious: No
  Sender: MYLAN
  Company Number: EU-MYLANLABS-2025M1086860

PATIENT
  Sex: Male

DRUGS (2)
  1. PROPRANOLOL [Suspect]
     Active Substance: PROPRANOLOL HYDROCHLORIDE
     Indication: Lymphatic disorder
     Dosage: UNK
  2. OCTREOTIDE [Suspect]
     Active Substance: OCTREOTIDE
     Indication: Lymphatic disorder
     Dosage: UNK

REACTIONS (1)
  - No adverse event [Unknown]
